FAERS Safety Report 5004912-X (Version None)
Quarter: 2006Q1

REPORT INFORMATION
  Report Type: 
  Country: None (occurrence: None)
  Receive Date: 20060321
  Receipt Date: 20060209
  Transmission Date: 20060701
  Serious: No
  Sender: FDA-Public Use
  Company Number: 2006US000347

PATIENT
  Age: 84 Year
  Sex: Male

DRUGS (1)
  1. VESICARE [Suspect]
     Dosage: UNK, UNK, ORAL
     Route: 048
     Dates: start: 20060207

REACTIONS (1)
  - DRUG INEFFECTIVE [None]
